FAERS Safety Report 21033087 (Version 2)
Quarter: 2022Q4

REPORT INFORMATION
  Report Type: Report from Study
  Country: ES (occurrence: ES)
  Receive Date: 20220701
  Receipt Date: 20221020
  Transmission Date: 20230113
  Serious: Yes (Hospitalization, Other)
  Sender: FDA-Public Use
  Company Number: ES-TAKEDA-ES201504348

PATIENT
  Age: 36 Year
  Sex: Female
  Weight: 68.6 kg

DRUGS (56)
  1. ICATIBANT [Suspect]
     Active Substance: ICATIBANT ACETATE
     Indication: Hereditary angioedema with C1 esterase inhibitor deficiency
     Dosage: UNK
     Route: 065
     Dates: start: 20120409
  2. ICATIBANT [Suspect]
     Active Substance: ICATIBANT ACETATE
     Indication: Hereditary angioedema with C1 esterase inhibitor deficiency
     Dosage: UNK
     Route: 065
     Dates: start: 20120409
  3. ICATIBANT [Suspect]
     Active Substance: ICATIBANT ACETATE
     Dosage: UNK
     Route: 065
     Dates: start: 20130910
  4. ICATIBANT [Suspect]
     Active Substance: ICATIBANT ACETATE
     Dosage: UNK
     Route: 065
     Dates: start: 20130910
  5. ICATIBANT [Suspect]
     Active Substance: ICATIBANT ACETATE
     Dosage: 30 MILLIGRAM
     Route: 058
     Dates: end: 20150411
  6. ICATIBANT [Suspect]
     Active Substance: ICATIBANT ACETATE
     Dosage: 30 MILLIGRAM
     Route: 058
     Dates: end: 20150411
  7. HUMAN C1-ESTERASE INHIBITOR [Suspect]
     Active Substance: HUMAN C1-ESTERASE INHIBITOR
     Indication: Hereditary angioedema with C1 esterase inhibitor deficiency
     Dosage: 1000 INTERNATIONAL UNIT
     Route: 042
     Dates: start: 20130708, end: 20140526
  8. HUMAN C1-ESTERASE INHIBITOR [Suspect]
     Active Substance: HUMAN C1-ESTERASE INHIBITOR
     Indication: Hereditary angioedema with C1 esterase inhibitor deficiency
     Dosage: 1000 INTERNATIONAL UNIT
     Route: 042
     Dates: start: 20130708, end: 20140526
  9. HUMAN C1-ESTERASE INHIBITOR [Suspect]
     Active Substance: HUMAN C1-ESTERASE INHIBITOR
     Indication: Hereditary angioedema with C1 esterase inhibitor deficiency
     Dosage: 1000 INTERNATIONAL UNIT
     Route: 042
     Dates: start: 20130708, end: 20140526
  10. HUMAN C1-ESTERASE INHIBITOR [Suspect]
     Active Substance: HUMAN C1-ESTERASE INHIBITOR
     Indication: Prophylaxis
     Dosage: 1000 INTERNATIONAL UNIT
     Route: 042
     Dates: start: 20150717, end: 20150717
  11. HUMAN C1-ESTERASE INHIBITOR [Suspect]
     Active Substance: HUMAN C1-ESTERASE INHIBITOR
     Indication: Prophylaxis
     Dosage: 1000 INTERNATIONAL UNIT
     Route: 042
     Dates: start: 20150717, end: 20150717
  12. HUMAN C1-ESTERASE INHIBITOR [Suspect]
     Active Substance: HUMAN C1-ESTERASE INHIBITOR
     Indication: Prophylaxis
     Dosage: 1000 INTERNATIONAL UNIT
     Route: 042
     Dates: start: 20150717, end: 20150717
  13. LORAZEPAM [Concomitant]
     Active Substance: LORAZEPAM
     Indication: Generalised anxiety disorder
     Dosage: UNK
     Route: 048
     Dates: end: 20150414
  14. LORAZEPAM [Concomitant]
     Active Substance: LORAZEPAM
     Indication: Antidepressant therapy
     Dosage: 1 MILLIGRAM
     Route: 048
     Dates: start: 20130130, end: 20150414
  15. LORAZEPAM [Concomitant]
     Active Substance: LORAZEPAM
     Dosage: 1 MILLIGRAM
     Route: 048
     Dates: start: 20150603, end: 20150603
  16. LORAZEPAM [Concomitant]
     Active Substance: LORAZEPAM
     Dosage: 1 MILLIGRAM
     Route: 048
     Dates: start: 20150707, end: 20150707
  17. LORAZEPAM [Concomitant]
     Active Substance: LORAZEPAM
     Dosage: 1 MILLIGRAM
     Route: 048
     Dates: start: 20150709, end: 20150709
  18. LORAZEPAM [Concomitant]
     Active Substance: LORAZEPAM
     Dosage: 1 MILLIGRAM
     Route: 048
     Dates: start: 20150711, end: 20150711
  19. LORAZEPAM [Concomitant]
     Active Substance: LORAZEPAM
     Dosage: 1 MILLIGRAM
     Route: 048
     Dates: start: 20150711
  20. SERTRALIN                          /01011401/ [Concomitant]
     Indication: Generalised anxiety disorder
     Dosage: 100 MILLIGRAM
     Route: 048
     Dates: start: 20131016, end: 20150414
  21. SERTRALIN                          /01011401/ [Concomitant]
     Dosage: 100 MILLIGRAM, QD
     Route: 048
     Dates: start: 20150414
  22. BROMAZEPAM [Concomitant]
     Active Substance: BROMAZEPAM
     Indication: Generalised anxiety disorder
     Dosage: UNK
     Route: 065
     Dates: start: 200301
  23. BROMAZEPAM [Concomitant]
     Active Substance: BROMAZEPAM
     Indication: Antidepressant therapy
     Dosage: 1.5 MILLIGRAM
     Route: 048
     Dates: start: 20150512
  24. FOLIC ACID [Concomitant]
     Active Substance: FOLIC ACID
     Indication: Pregnancy
     Dosage: 1 DOSAGE FORM, QD
     Route: 065
     Dates: start: 20150603
  25. FOLIC ACID [Concomitant]
     Active Substance: FOLIC ACID
     Dosage: 5 MILLIGRAM, QD
     Route: 048
     Dates: start: 20150603
  26. AMOXICILLIN [Concomitant]
     Active Substance: AMOXICILLIN
     Indication: Secretion discharge
     Dosage: 500 MILLIGRAM, TID
     Route: 065
     Dates: start: 20151111, end: 20151116
  27. AMOXICILLIN [Concomitant]
     Active Substance: AMOXICILLIN
     Dosage: 500 MILLIGRAM, Q8HR
     Route: 048
     Dates: start: 20151211, end: 20151216
  28. NISTATIN [Concomitant]
     Active Substance: NYSTATIN
     Indication: Oral candidiasis
     Dosage: UNK
     Route: 065
     Dates: start: 20151118
  29. IRON [Concomitant]
     Active Substance: IRON
     Indication: Iron deficiency
     Dosage: 80 MILLIGRAM
     Route: 065
     Dates: start: 20151029
  30. CIPROFLOXACIN [Concomitant]
     Active Substance: CIPROFLOXACIN
     Indication: Urinary tract infection
     Dosage: 500 MILLIGRAM, BID
     Route: 048
     Dates: start: 20150426, end: 20150503
  31. OMEPRAZOLE [Concomitant]
     Active Substance: OMEPRAZOLE
     Indication: Prophylaxis
     Dosage: 20 MILLIGRAM
     Route: 048
  32. RANITIDINE [Concomitant]
     Active Substance: RANITIDINE
     Indication: Prophylaxis
     Dosage: 150 MILLIGRAM
     Route: 048
     Dates: start: 20150530, end: 20150605
  33. RANITIDINE [Concomitant]
     Active Substance: RANITIDINE
     Dosage: 50 MILLIGRAM
     Route: 042
     Dates: start: 20150605, end: 20150605
  34. RANITIDINE [Concomitant]
     Active Substance: RANITIDINE
     Dosage: 150 MILLIGRAM, BID
     Route: 048
     Dates: start: 20150605, end: 20150706
  35. RANITIDINE [Concomitant]
     Active Substance: RANITIDINE
     Dosage: 50 MILLIGRAM
     Route: 042
     Dates: start: 20150621, end: 20150621
  36. RANITIDINE [Concomitant]
     Active Substance: RANITIDINE
     Dosage: 50 MILLIGRAM
     Route: 042
     Dates: start: 20150628, end: 20150628
  37. RANITIDINE [Concomitant]
     Active Substance: RANITIDINE
     Dosage: 50 MILLIGRAM
     Route: 042
     Dates: start: 20150701, end: 20150701
  38. RANITIDINE [Concomitant]
     Active Substance: RANITIDINE
     Dosage: 150 MILLIGRAM
     Route: 048
     Dates: start: 20150707
  39. PYRIDOXINE [Concomitant]
     Active Substance: PYRIDOXINE
     Indication: Nausea
     Dosage: 10 MILLIGRAM
     Route: 048
     Dates: start: 20150530, end: 20150703
  40. PYRIDOXINE [Concomitant]
     Active Substance: PYRIDOXINE
     Indication: Vomiting
  41. METOCLOPRAMIDE HYDROCHLORIDE [Concomitant]
     Active Substance: METOCLOPRAMIDE HYDROCHLORIDE
     Indication: Nausea
     Dosage: 10 MILLIGRAM
     Route: 042
     Dates: start: 20150605, end: 20150605
  42. METOCLOPRAMIDE HYDROCHLORIDE [Concomitant]
     Active Substance: METOCLOPRAMIDE HYDROCHLORIDE
     Indication: Vomiting
     Dosage: 10 MILLIGRAM
     Route: 042
     Dates: start: 20150621, end: 20150621
  43. METOCLOPRAMIDE HYDROCHLORIDE [Concomitant]
     Active Substance: METOCLOPRAMIDE HYDROCHLORIDE
     Dosage: 10 MILLIGRAM
     Route: 042
     Dates: start: 20150628, end: 20150628
  44. METOCLOPRAMIDE HYDROCHLORIDE [Concomitant]
     Active Substance: METOCLOPRAMIDE HYDROCHLORIDE
     Dosage: 10 MILLIGRAM
     Route: 042
     Dates: start: 20150701, end: 20150701
  45. SCOPOLAMINE [Concomitant]
     Active Substance: SCOPOLAMINE
     Indication: Muscle spasms
     Dosage: 20 MILLIGRAM
     Route: 042
     Dates: start: 20150628, end: 20150628
  46. SCOPOLAMINE [Concomitant]
     Active Substance: SCOPOLAMINE
     Dosage: 20 MILLIGRAM
     Route: 042
     Dates: start: 20150701, end: 20150701
  47. SCOPOLAMINE [Concomitant]
     Active Substance: SCOPOLAMINE
     Dosage: 10 MILLIGRAM
     Route: 048
     Dates: start: 20150701
  48. ACETAMINOPHEN [Concomitant]
     Active Substance: ACETAMINOPHEN
     Indication: Pain
     Dosage: 2 GRAM
     Route: 042
     Dates: start: 20150703, end: 20150703
  49. ACETAMINOPHEN [Concomitant]
     Active Substance: ACETAMINOPHEN
     Indication: Pyrexia
  50. THIAMINE HYDROCHLORIDE [Concomitant]
     Active Substance: THIAMINE HYDROCHLORIDE
     Indication: Hypovitaminosis
     Dosage: 250 MILLIGRAM
     Route: 048
     Dates: start: 20150708, end: 20150710
  51. PYRIDOXINE HYDROCHLORIDE [Concomitant]
     Active Substance: PYRIDOXINE HYDROCHLORIDE
     Indication: Hypovitaminosis
     Dosage: 250 MILLIGRAM
     Route: 048
     Dates: start: 20150708, end: 20150710
  52. CIANOCOBALAMINA [Concomitant]
     Indication: Hypovitaminosis
     Dosage: 1000 MICROGRAM
     Route: 048
     Dates: start: 20150708, end: 20150710
  53. CYANOCOBALAMIN [Concomitant]
     Active Substance: CYANOCOBALAMIN
     Dosage: 1000 MICROGRAM
     Route: 042
     Dates: start: 20150709, end: 20150709
  54. FOLIC ACID [Concomitant]
     Active Substance: FOLIC ACID
     Indication: Pregnancy
     Dosage: 5 MILLIGRAM, QD
     Route: 048
     Dates: start: 20150717, end: 20160121
  55. CLOMIPRAMINE [Concomitant]
     Active Substance: CLOMIPRAMINE
     Indication: Depression
     Dosage: 25 MILLIGRAM
     Route: 048
     Dates: start: 20160530, end: 20180116
  56. SYNTOCINON [Concomitant]
     Active Substance: OXYTOCIN
     Indication: Abortion induced
     Dosage: 10 INTERNATIONAL UNIT
     Route: 042
     Dates: start: 20180214, end: 20180214

REACTIONS (4)
  - Gastroenteritis [Recovered/Resolved]
  - Angioedema [Recovered/Resolved]
  - Pregnancy [Recovered/Resolved]
  - Inappropriate schedule of product administration [Not Recovered/Not Resolved]

NARRATIVE: CASE EVENT DATE: 20150401
